FAERS Safety Report 4343851-4 (Version None)
Quarter: 2004Q2

REPORT INFORMATION
  Report Type: 
  Country: None (occurrence: None)
  Receive Date: 20040421
  Receipt Date: 20040421
  Transmission Date: 20050107
  Serious: Yes (Hospitalization)
  Sender: FDA-Public Use
  Company Number: None

PATIENT

DRUGS (3)
  1. VINBLASTINE IV [Suspect]
     Dosage: 13 MG IV
     Route: 042
  2. DOXORUBICIN HCL [Suspect]
     Dosage: 108 MG
  3. ETOPOSIDE [Suspect]

REACTIONS (2)
  - PANCYTOPENIA [None]
  - PYREXIA [None]
